FAERS Safety Report 8440647-9 (Version None)
Quarter: 2012Q2

REPORT INFORMATION
  Report Type: 
  Country: None (occurrence: None)
  Receive Date: 20120615
  Receipt Date: 20120608
  Transmission Date: 20120825
  Serious: Yes (Hospitalization)
  Sender: FDA-Public Use
  Company Number: JP-MERCK-1205USA04839

PATIENT
  Age: 67 Year
  Sex: Female
  Weight: 55 kg

DRUGS (5)
  1. LIVALO [Concomitant]
     Indication: HYPERCHOLESTEROLAEMIA
     Dosage: DIVIDED DOSE FREQUENCY UNKNOWN
     Route: 048
     Dates: start: 20091130
  2. JANUVIA [Suspect]
     Indication: TYPE 2 DIABETES MELLITUS
     Route: 048
     Dates: start: 20101120, end: 20120416
  3. D-ALPHA [Concomitant]
     Indication: OSTEOPOROSIS
     Dosage: DIVIDED DOSE FREQUENCY UNKNOWN
     Route: 048
     Dates: start: 20100508
  4. RISEDRONATE SODIUM [Concomitant]
     Indication: OSTEOPOROSIS
     Route: 048
     Dates: start: 20100508
  5. JANUVIA [Suspect]
     Route: 048
     Dates: start: 20120425, end: 20120517

REACTIONS (2)
  - ILEUS [None]
  - DECREASED APPETITE [None]
